FAERS Safety Report 9625585 (Version 1)
Quarter: 2013Q4

REPORT INFORMATION
  Report Type: Spontaneous
  Country: US (occurrence: None)
  Receive Date: 20131015
  Receipt Date: 20131015
  Transmission Date: 20140711
  Serious: No
  Sender: FDA-Public Use
  Company Number: None

PATIENT
  Age: 30 Year
  Sex: Female

DRUGS (5)
  1. TECFIDERA [Suspect]
     Indication: MULTIPLE SCLEROSIS
     Dosage: 120MG, BID X 7 DAYS, THEN 240MG?
     Route: 048
     Dates: start: 20130913, end: 20131011
  2. CLARITIN [Concomitant]
  3. FLONASE [Concomitant]
  4. CITALOPRAM [Concomitant]
  5. VITAMIN D [Concomitant]

REACTIONS (1)
  - Weight increased [None]
